FAERS Safety Report 10855405 (Version 1)
Quarter: 2015Q1

REPORT INFORMATION
  Report Type: Report from Study
  Country: IE (occurrence: IE)
  Receive Date: 20150223
  Receipt Date: 20150223
  Transmission Date: 20150721
  Serious: Yes (Death)
  Sender: FDA-Public Use
  Company Number: IE-B.I. PHARMACEUTICALS,INC./RIDGEFIELD-2015-BI-06889BI

PATIENT
  Age: 70 Year
  Sex: Male
  Weight: 80 kg

DRUGS (3)
  1. DABIGATRAN [Suspect]
     Active Substance: DABIGATRAN
     Indication: CEREBROVASCULAR ACCIDENT PROPHYLAXIS
     Dosage: 220 MG
     Route: 048
     Dates: end: 20150206
  2. DABIGATRAN [Suspect]
     Active Substance: DABIGATRAN
     Indication: ATRIAL FIBRILLATION
  3. BI 655075 [Suspect]
     Active Substance: IDARUCIZUMAB
     Indication: COAGULATION TIME SHORTENED
     Dosage: 5 G
     Route: 042
     Dates: start: 20150207, end: 20150207

REACTIONS (2)
  - Intracranial pressure increased [Fatal]
  - Brain oedema [Fatal]

NARRATIVE: CASE EVENT DATE: 20150207
